FAERS Safety Report 9905894 (Version 1)
Quarter: 2013Q2

REPORT INFORMATION
  Report Type: Spontaneous
  Country: US (occurrence: None)
  Receive Date: 20130627
  Receipt Date: 20130627
  Transmission Date: 20140414
  Serious: No
  Sender: FDA-Public Use
  Company Number: 1000044521

PATIENT
  Age: 74 Year
  Sex: Female

DRUGS (6)
  1. LINZESS (LINACLOTIDE) (290 MICROGRAM, CAPSULES) [Suspect]
     Indication: IRRITABLE BOWEL SYNDROME
     Dosage: 290 MCG (290 MCG, 1 IN 1 D), ORAL
     Route: 048
     Dates: start: 201303
  2. LINZESS (LINACLOTIDE) (290 MICROGRAM, CAPSULES) [Suspect]
     Indication: CONSTIPATION
     Dosage: 290 MCG (290 MCG, 1 IN 1 D), ORAL
     Route: 048
     Dates: start: 201303
  3. AMITIZA (LUBIPROSTONE) [Suspect]
     Indication: IRRITABLE BOWEL SYNDROME
     Dosage: 8 MCG, (8 MCG, 1 IN 1 D), ORAL
     Route: 048
  4. AMITIZA (LUBIPROSTONE) [Suspect]
     Indication: CONSTIPATION
     Dosage: 8 MCG, (8 MCG, 1 IN 1 D), ORAL
     Route: 048
  5. PROTONIX (PANTOPRAZOLE SODIUM SESQUIHYDRATE) [Concomitant]
  6. COLACE [Concomitant]

REACTIONS (1)
  - Abdominal distension [None]
